FAERS Safety Report 11713325 (Version 3)
Quarter: 2016Q1

REPORT INFORMATION
  Report Type: Spontaneous
  Country: US (occurrence: US)
  Receive Date: 20151109
  Receipt Date: 20160307
  Transmission Date: 20160525
  Serious: No
  Sender: FDA-Public Use
  Company Number: US-009507513-1510USA014622

PATIENT
  Sex: Female
  Weight: 127.44 kg

DRUGS (1)
  1. NEXPLANON [Suspect]
     Active Substance: ETONOGESTREL
     Dosage: 68 MG IMPLANT FOR 3 YEARS
     Route: 059
     Dates: start: 20140919, end: 20151026

REACTIONS (2)
  - Device breakage [Recovered/Resolved]
  - No adverse event [Unknown]
